FAERS Safety Report 9418337 (Version 3)
Quarter: 2013Q3

REPORT INFORMATION
  Report Type: Spontaneous
  Country: JP (occurrence: JP)
  Receive Date: 20130725
  Receipt Date: 20130916
  Transmission Date: 20140515
  Serious: Yes (Other)
  Sender: FDA-Public Use
  Company Number: JP-009507513-1307JPN011302

PATIENT
  Age: 78 Year
  Sex: Female

DRUGS (3)
  1. TIMOPTOL OPHTHALMIC SOLUTION 0.5% [Suspect]
     Indication: INTRAOCULAR PRESSURE INCREASED
     Dosage: UNK
     Route: 047
     Dates: start: 2007
  2. TIMOPTOL OPHTHALMIC SOLUTION 0.5% [Suspect]
     Indication: UVEITIS
  3. BETAMETHASONE [Concomitant]
     Indication: UVEITIS
     Dosage: UNK
     Route: 047
     Dates: start: 2007

REACTIONS (1)
  - Myasthenia gravis [Unknown]
